FAERS Safety Report 23359527 (Version 2)
Quarter: 2024Q1

REPORT INFORMATION
  Report Type: Report from Study
  Country: FR (occurrence: FR)
  Receive Date: 20240103
  Receipt Date: 20240108
  Transmission Date: 20240410
  Serious: Yes (Death, Life-Threatening, Hospitalization)
  Sender: FDA-Public Use
  Company Number: FR-SA-SAC20240101000224

PATIENT
  Age: 59 Year
  Sex: Male
  Weight: 82 kg

DRUGS (10)
  1. ISATUXIMAB [Suspect]
     Active Substance: ISATUXIMAB
     Indication: Plasma cell myeloma
     Dosage: 10 MG/KG; J1 AND J15
     Route: 041
     Dates: start: 20220929, end: 20220929
  2. ISATUXIMAB [Suspect]
     Active Substance: ISATUXIMAB
     Dosage: 790 MG, QM (MAINTENANCE)
     Route: 041
     Dates: start: 20231219, end: 20231219
  3. CARFILZOMIB [Suspect]
     Active Substance: CARFILZOMIB
     Indication: Plasma cell myeloma
     Dosage: 56 MG/M2; J1 AND 15
     Route: 042
     Dates: start: 20220929, end: 20220929
  4. CARFILZOMIB [Suspect]
     Active Substance: CARFILZOMIB
     Dosage: 112 MG; 3 TIMES
     Route: 042
     Dates: start: 20230817, end: 20230817
  5. LENALIDOMIDE [Suspect]
     Active Substance: LENALIDOMIDE
     Indication: Plasma cell myeloma
     Dosage: 25 MG, QD DURING 21 DAYS
     Route: 048
     Dates: start: 20220929, end: 20220929
  6. LENALIDOMIDE [Suspect]
     Active Substance: LENALIDOMIDE
     Dosage: 25 MG, QD DURING 21 DAYS
     Route: 048
     Dates: start: 20230823, end: 20230823
  7. DEXAMETHASONE [Suspect]
     Active Substance: DEXAMETHASONE
     Indication: Plasma cell myeloma
     Dosage: 40 MG; J1, J8, J15 AND J22
     Route: 048
     Dates: start: 20220929, end: 20220929
  8. DEXAMETHASONE [Suspect]
     Active Substance: DEXAMETHASONE
     Dosage: 40 MG; J1, J8, J15 AND J22
     Route: 048
     Dates: start: 20230824, end: 20230824
  9. IBERDOMIDE [Suspect]
     Active Substance: IBERDOMIDE
     Indication: Plasma cell myeloma
     Dosage: 1 MG, QD DURING 21 DAYS
     Route: 048
     Dates: start: 20231023, end: 20231023
  10. IBERDOMIDE [Suspect]
     Active Substance: IBERDOMIDE
     Dosage: 1 MG, QD DURING 21 DAYS
     Route: 048
     Dates: start: 20231227, end: 20231227

REACTIONS (1)
  - Brain death [Fatal]

NARRATIVE: CASE EVENT DATE: 20231228
